FAERS Safety Report 4583122-4 (Version None)
Quarter: 2005Q1

REPORT INFORMATION
  Report Type: 
  Country: None (occurrence: None)
  Receive Date: 20050125
  Receipt Date: 20041020
  Transmission Date: 20050727
  Serious: No
  Sender: FDA-Public Use
  Company Number: USA041081866

PATIENT
  Age: 58 Year
  Sex: Female

DRUGS (1)
  1. FORTEO [Suspect]
     Indication: OSTEOPENIA
     Dates: start: 20040801

REACTIONS (5)
  - ARTHRALGIA [None]
  - ARTICULAR CALCIFICATION [None]
  - EXOSTOSIS [None]
  - MUSCULOSKELETAL DISCOMFORT [None]
  - TREMOR [None]
